FAERS Safety Report 12519559 (Version 1)
Quarter: 2016Q3

REPORT INFORMATION
  Report Type: Other
  Country: US (occurrence: US)
  Receive Date: 20160701
  Receipt Date: 20160701
  Transmission Date: 20161109
  Serious: No
  Sender: FDA-Public Use
  Company Number: US-LUPIN PHARMACEUTICALS INC.-2015-02703

PATIENT
  Age: 29 Year
  Sex: Female

DRUGS (9)
  1. ROSUVASTATIN. [Suspect]
     Active Substance: ROSUVASTATIN
     Indication: TYPE IIA HYPERLIPIDAEMIA
     Route: 065
  2. NIACIN EXTENDED RELEASE [Concomitant]
     Active Substance: NIACIN
     Indication: TYPE IIA HYPERLIPIDAEMIA
     Dosage: TITRATED UP TO 1.5 G DAILY
     Route: 065
     Dates: start: 201209
  3. EZETIMIBE. [Concomitant]
     Active Substance: EZETIMIBE
     Indication: TYPE IIA HYPERLIPIDAEMIA
     Dosage: 10 MG DAILY
     Route: 065
  4. SIMVASTATIN. [Suspect]
     Active Substance: SIMVASTATIN
     Indication: TYPE IIA HYPERLIPIDAEMIA
     Dosage: 20 MG
     Route: 065
     Dates: start: 201010
  5. COLESEVELAM [Concomitant]
     Active Substance: COLESEVELAM
     Indication: TYPE IIA HYPERLIPIDAEMIA
     Dosage: TITRATED UP TO 3.75 G DAILY
     Route: 065
     Dates: start: 201207, end: 201209
  6. ATORVASTATIN [Suspect]
     Active Substance: ATORVASTATIN
     Indication: TYPE IIA HYPERLIPIDAEMIA
     Route: 065
     Dates: start: 201308, end: 201308
  7. ROSUVASTATIN. [Suspect]
     Active Substance: ROSUVASTATIN
     Dosage: 10 MG
     Route: 065
  8. COLESEVELAM [Concomitant]
     Active Substance: COLESEVELAM
     Route: 065
  9. NIACIN EXTENDED RELEASE [Concomitant]
     Active Substance: NIACIN
     Route: 065
     Dates: end: 201311

REACTIONS (5)
  - Urticaria [Recovered/Resolved]
  - Respiratory tract oedema [Recovered/Resolved]
  - Cough [Recovered/Resolved]
  - Pruritus [Recovered/Resolved]
  - Flushing [Recovered/Resolved]
